FAERS Safety Report 4353020-X (Version None)
Quarter: 2004Q2

REPORT INFORMATION
  Report Type: 
  Country: None (occurrence: None)
  Receive Date: 20040430
  Receipt Date: 20040318
  Transmission Date: 20050107
  Serious: No
  Sender: FDA-Public Use
  Company Number: 205359

PATIENT
  Age: 20 Year
  Sex: Female
  Weight: 79 kg

DRUGS (8)
  1. XOLAIR (OMALIZUMAMB) PWDR + SOLVENT, INJECTION SOLN, 150 MG [Suspect]
     Indication: ASTHMA
     Dosage: 150 MG, 1/MONTH, SUBCUTANEOUS
     Route: 058
     Dates: start: 20031024
  2. ACIPHEX [Concomitant]
  3. ADVAIR (SALMETEROL XINAFOATE, FLUTICASONE PROPIONATE) [Concomitant]
  4. ALBUTEROL (ALBUTEROL, ALBUTEROL SULFATE) [Concomitant]
  5. SINGULAIR [Concomitant]
  6. RHINOCORT [Concomitant]
  7. ALLEGRA [Concomitant]
  8. QVAR (BECLOMETHASONE DIPROPIONATE) [Concomitant]

REACTIONS (1)
  - INFLUENZA LIKE ILLNESS [None]
